FAERS Safety Report 4829890-5 (Version None)
Quarter: 2005Q4

REPORT INFORMATION
  Report Type: 
  Country: None (occurrence: None)
  Receive Date: 20051115
  Receipt Date: 20051115
  Transmission Date: 20060501
  Serious: Yes (Life-Threatening, Other)
  Sender: FDA-Public Use
  Company Number: None

PATIENT
  Sex: Female
  Weight: 65 kg

DRUGS (1)
  1. EFFEXOR XR [Suspect]
     Indication: DEPRESSION
     Dosage: 75.00 MG   DAILY
     Dates: start: 20050510, end: 20051030

REACTIONS (3)
  - INTENTIONAL SELF-INJURY [None]
  - SUICIDAL IDEATION [None]
  - UNEVALUABLE EVENT [None]
